FAERS Safety Report 10668393 (Version 2)
Quarter: 2014Q4

REPORT INFORMATION
  Report Type: Spontaneous
  Country: IT (occurrence: IT)
  Receive Date: 20141222
  Receipt Date: 20141229
  Transmission Date: 20150529
  Serious: Yes (Hospitalization)
  Sender: FDA-Public Use
  Company Number: IT-TEVA-529932ISR

PATIENT
  Age: 41 Year
  Sex: Male
  Weight: 63 kg

DRUGS (5)
  1. DECADRON [Concomitant]
     Active Substance: DEXAMETHASONE
     Indication: PREMEDICATION
     Dosage: 8 MILLIGRAM DAILY;
     Route: 042
     Dates: start: 20140926, end: 20141205
  2. RANITIDINE [Concomitant]
     Active Substance: RANITIDINE\RANITIDINE HYDROCHLORIDE
     Indication: PROPHYLAXIS AGAINST GASTROINTESTINAL ULCER
     Dosage: 50 MILLIGRAM DAILY;
     Route: 042
     Dates: start: 20140926, end: 20141205
  3. GEMZAR [Concomitant]
     Active Substance: GEMCITABINE HYDROCHLORIDE
     Indication: BLADDER CANCER STAGE IV
     Route: 042
     Dates: start: 20140926, end: 20141205
  4. ALOXI [Concomitant]
     Active Substance: PALONOSETRON HYDROCHLORIDE
     Indication: PROPHYLAXIS OF NAUSEA AND VOMITING
     Route: 042
     Dates: start: 20140926, end: 20141205
  5. CISPLATINO TEVA ITALIA [Suspect]
     Active Substance: CISPLATIN
     Indication: BLADDER CANCER
     Route: 042
     Dates: start: 20140926, end: 20141205

REACTIONS (2)
  - Vomiting [Recovered/Resolved]
  - Hyperpyrexia [Recovered/Resolved]

NARRATIVE: CASE EVENT DATE: 20141108
